FAERS Safety Report 9613607 (Version 1)
Quarter: 2013Q4

REPORT INFORMATION
  Report Type: Spontaneous
  Country: DK (occurrence: None)
  Receive Date: 20131008
  Receipt Date: 20131008
  Transmission Date: 20140711
  Serious: Yes (Hospitalization)
  Sender: FDA-Public Use
  Company Number: B0926488A

PATIENT
  Age: 35 Year
  Sex: Female

DRUGS (4)
  1. SALBUTAMOL SULPHATE [Suspect]
     Indication: ASTHMA
     Route: 055
  2. IPRATROPIUM BROMIDE [Concomitant]
  3. METHYLPREDNISOLONE [Concomitant]
  4. PREDNISOLONE [Concomitant]

REACTIONS (4)
  - Lactic acidosis [None]
  - General physical health deterioration [None]
  - Tachypnoea [None]
  - Tachycardia [None]
